FAERS Safety Report 16342084 (Version 3)
Quarter: 2021Q3

REPORT INFORMATION
  Report Type: Other
  Country: JP (occurrence: JP)
  Receive Date: 20190522
  Receipt Date: 20210809
  Transmission Date: 20211014
  Serious: Yes (Other)
  Sender: FDA-Public Use
  Company Number: JP-ROCHE-2319509

PATIENT
  Age: 59 Year
  Sex: Female
  Weight: 30 kg

DRUGS (2)
  1. ATEZOLIZUMAB. [Suspect]
     Active Substance: ATEZOLIZUMAB
     Indication: LUNG ADENOCARCINOMA
     Route: 041
     Dates: start: 20180905, end: 20181017
  2. ATEZOLIZUMAB. [Suspect]
     Active Substance: ATEZOLIZUMAB
     Route: 041
     Dates: start: 20181116, end: 20181116

REACTIONS (3)
  - Liver disorder [Recovering/Resolving]
  - Pyrexia [Unknown]
  - Pyrexia [Unknown]

NARRATIVE: CASE EVENT DATE: 20180905
